FAERS Safety Report 6218076-8 (Version None)
Quarter: 2009Q2

REPORT INFORMATION
  Report Type: 
  Country: None (occurrence: None)
  Receive Date: 20090608
  Receipt Date: 20090525
  Transmission Date: 20091009
  Serious: Yes (Hospitalization)
  Sender: FDA-Public Use
  Company Number: FR-PFIZER INC-2009217467

PATIENT
  Age: 82 Year

DRUGS (13)
  1. ALDACTONE [Suspect]
     Indication: HYPERTENSION
     Dosage: 25 MG, 1X/DAY
     Route: 048
     Dates: end: 20090317
  2. DIGOXIN [Suspect]
     Indication: CARDIAC FAILURE
     Dosage: 0.25 MG, 1X/DAY
     Route: 048
  3. ACTRAPID [Suspect]
     Indication: TYPE 2 DIABETES MELLITUS
     Dosage: UNK
     Route: 058
     Dates: end: 20090317
  4. TRIATEC [Suspect]
     Indication: HYPERTENSION
     Dosage: 10 MG, 1X/DAY
     Route: 048
     Dates: end: 20090317
  5. AMLOR [Concomitant]
  6. LASIX [Concomitant]
  7. PRAXILENE [Concomitant]
  8. TAHOR [Concomitant]
  9. LANTUS [Concomitant]
  10. TEMESTA [Concomitant]
  11. ATARAX [Concomitant]
  12. NORSET [Concomitant]
  13. PREVISCAN [Concomitant]

REACTIONS (2)
  - ANOREXIA [None]
  - OVERDOSE [None]
